FAERS Safety Report 9890208 (Version 1)
Quarter: 2014Q1

REPORT INFORMATION
  Report Type: Spontaneous
  Country: US (occurrence: US)
  Receive Date: 20140212
  Receipt Date: 20140212
  Transmission Date: 20141002
  Serious: No
  Sender: FDA-Public Use
  Company Number: US-BIOGENIDEC-2014BI011846

PATIENT
  Sex: Female

DRUGS (8)
  1. TECFIDERA [Suspect]
     Indication: MULTIPLE SCLEROSIS
     Route: 048
  2. ACIDOPHILUS [Concomitant]
  3. AMPYRA [Concomitant]
  4. BACLOFEN [Concomitant]
  5. TRIAMTERENE-HCTZ [Concomitant]
  6. VENLAFAXINE HCL [Concomitant]
  7. VITAMIN B-12 [Concomitant]
  8. VITAMIN D3 400 [Concomitant]

REACTIONS (1)
  - Dizziness [Unknown]
